FAERS Safety Report 4682323-4 (Version None)
Quarter: 2005Q2

REPORT INFORMATION
  Report Type: 
  Country: None (occurrence: None)
  Receive Date: 20050606
  Receipt Date: 20050419
  Transmission Date: 20051028
  Serious: Yes (Life-Threatening, Hospitalization)
  Sender: FDA-Public Use
  Company Number: ESWYE600020APR05

PATIENT
  Age: 63 Year
  Sex: Female

DRUGS (6)
  1. ENBREL [Suspect]
     Indication: RHEUMATOID ARTHRITIS
     Route: 058
  2. DEFLAZACORT [Concomitant]
     Dates: end: 20050101
  3. METHOTREXATE [Concomitant]
  4. INSULIN MIXTARD HUMAN [Concomitant]
  5. ATORVASTATIN CALCIUM [Concomitant]
  6. ENALAPRIL MALEATE [Concomitant]

REACTIONS (3)
  - ACUTE MYOCARDIAL INFARCTION [None]
  - NAUSEA [None]
  - VOMITING [None]
